FAERS Safety Report 26083969 (Version 1)
Quarter: 2025Q4

REPORT INFORMATION
  Report Type: Spontaneous
  Country: EU (occurrence: EU)
  Receive Date: 20251124
  Receipt Date: 20251124
  Transmission Date: 20260117
  Serious: Yes (Hospitalization, Other)
  Sender: MYLAN
  Company Number: EU-ASTRAZENECA-202510GLO032370FR

PATIENT
  Age: 83 Year
  Sex: Male

DRUGS (5)
  1. CANDESARTAN CILEXETIL [Interacting]
     Active Substance: CANDESARTAN CILEXETIL
     Indication: Hypertension
     Dosage: 16 MILLIGRAM
  2. HYDROCHLOROTHIAZIDE [Interacting]
     Active Substance: HYDROCHLOROTHIAZIDE
     Indication: Hypertension
     Dosage: 12.5 MILLIGRAM
  3. ALFUZOSIN [Concomitant]
     Active Substance: ALFUZOSIN
     Dosage: UNK
  4. CALCIFEDIOL [Concomitant]
     Active Substance: CALCIFEDIOL
     Dosage: UNK
  5. MOVICOL [Concomitant]
     Active Substance: POLYETHYLENE GLYCOL 3350\POTASSIUM CHLORIDE\SODIUM BICARBONATE\SODIUM CHLORIDE
     Dosage: UNK

REACTIONS (4)
  - Hyponatraemia [Recovered/Resolved]
  - Drug interaction [Recovered/Resolved]
  - Hypokalaemia [Unknown]
  - Decreased appetite [Unknown]

NARRATIVE: CASE EVENT DATE: 20250922
